FAERS Safety Report 20753480 (Version 1)
Quarter: 2022Q2

REPORT INFORMATION
  Report Type: Spontaneous
  Country: US (occurrence: None)
  Receive Date: 20220426
  Receipt Date: 20220426
  Transmission Date: 20220720
  Serious: No
  Sender: FDA-Public Use
  Company Number: US-ROCHE-2829762

PATIENT
  Sex: Female

DRUGS (1)
  1. ESBRIET [Suspect]
     Active Substance: PIRFENIDONE
     Indication: Idiopathic pulmonary fibrosis
     Dosage: TAKE 1 CAP 3 TIMES DAILY ON WEEK 1, 2 CAP 3 TIMES DAILY ON WEEK2, 3CAP THREE TIMES DAILY ON WEEK 3.
     Route: 048
     Dates: start: 20210426

REACTIONS (2)
  - Dyspepsia [Unknown]
  - Dysphagia [Unknown]
